FAERS Safety Report 10983464 (Version 1)
Quarter: 2015Q2

REPORT INFORMATION
  Report Type: Spontaneous
  Country: JP (occurrence: JP)
  Receive Date: 20150403
  Receipt Date: 20150403
  Transmission Date: 20150821
  Serious: Yes (Hospitalization, Other)
  Sender: FDA-Public Use
  Company Number: JP-GLAXOSMITHKLINE-JP2015JPN012691

PATIENT
  Age: 20 Year
  Sex: Female
  Weight: 60 kg

DRUGS (5)
  1. LAMICTAL [Suspect]
     Active Substance: LAMOTRIGINE
     Dosage: 50 MG, 1D
     Route: 048
     Dates: start: 20141217, end: 20141230
  2. FOLIAMIN [Concomitant]
     Active Substance: FOLIC ACID
     Dosage: 15 MG, 1D
     Dates: start: 20141202
  3. LAMICTAL [Suspect]
     Active Substance: LAMOTRIGINE
     Indication: EPILEPSY
     Dosage: 25 MG, 1D
     Route: 048
     Dates: start: 20141130, end: 20141216
  4. DEPAKENE [Concomitant]
     Active Substance: VALPROIC ACID
     Indication: EPILEPSY
     Dosage: 400 MG, 1D
     Dates: start: 20141121, end: 20141129
  5. LAMICTAL [Suspect]
     Active Substance: LAMOTRIGINE
     Dosage: 100 MG, 1D
     Route: 048
     Dates: start: 20141231

REACTIONS (2)
  - Exposure during pregnancy [Unknown]
  - Abortion threatened [Unknown]

NARRATIVE: CASE EVENT DATE: 20150122
